FAERS Safety Report 17009814 (Version 3)
Quarter: 2025Q3

REPORT INFORMATION
  Report Type: Spontaneous
  Country: EU (occurrence: EU)
  Receive Date: 20191108
  Receipt Date: 20250911
  Transmission Date: 20251021
  Serious: Yes (Hospitalization)
  Sender: MYLAN
  Company Number: EU-BIOGARAN-B19000636

PATIENT
  Age: 51 Year
  Sex: Male

DRUGS (3)
  1. PREGABALIN [Suspect]
     Active Substance: PREGABALIN
     Indication: Neuralgia
  2. KETAMINE [Suspect]
     Active Substance: KETAMINE
     Indication: Neuralgia
  3. MORPHINE [Concomitant]
     Active Substance: MORPHINE
     Indication: Neuralgia

REACTIONS (3)
  - Therapeutic product effect incomplete [Unknown]
  - Drug ineffective [Unknown]
  - Therapy partial responder [Unknown]
